FAERS Safety Report 12797432 (Version 1)
Quarter: 2016Q3

REPORT INFORMATION
  Report Type: Spontaneous
  Country: US (occurrence: US)
  Receive Date: 20160929
  Receipt Date: 20160929
  Transmission Date: 20161109
  Serious: No
  Sender: FDA-Public Use
  Company Number: None

PATIENT
  Age: 47 Year
  Sex: Female
  Weight: 65.7 kg

DRUGS (3)
  1. VITAMIN C [Concomitant]
     Active Substance: ASCORBIC ACID
  2. ALDACTONE [Concomitant]
     Active Substance: SPIRONOLACTONE
  3. RESTASIS [Suspect]
     Active Substance: CYCLOSPORINE
     Indication: DRY EYE
     Dosage: ?          QUANTITY:1 DROP(S);?
     Route: 047
     Dates: start: 20160823, end: 20160918

REACTIONS (7)
  - Drug ineffective [None]
  - Eye pruritus [None]
  - Blood pressure abnormal [None]
  - Insomnia [None]
  - Eye irritation [None]
  - Palpitations [None]
  - Eye pain [None]

NARRATIVE: CASE EVENT DATE: 20160917
